FAERS Safety Report 18024573 (Version 1)
Quarter: 2020Q3

REPORT INFORMATION
  Report Type: Spontaneous
  Country: US (occurrence: US)
  Receive Date: 20200714
  Receipt Date: 20200714
  Transmission Date: 20201103
  Serious: No
  Sender: FDA-Public Use
  Company Number: None

PATIENT
  Age: 32 Year
  Sex: Male
  Weight: 74.25 kg

DRUGS (11)
  1. TRINTELLIX [Suspect]
     Active Substance: VORTIOXETINE HYDROBROMIDE
     Indication: DEPRESSION
     Dosage: ?          QUANTITY:1 TABLET(S);?
     Route: 048
     Dates: start: 20200630
  2. TRINTELLIX [Suspect]
     Active Substance: VORTIOXETINE HYDROBROMIDE
     Indication: ANXIETY
     Dosage: ?          QUANTITY:1 TABLET(S);?
     Route: 048
     Dates: start: 20200630
  3. PREGABALIN. [Concomitant]
     Active Substance: PREGABALIN
  4. PROBIOTICS [Concomitant]
     Active Substance: PROBIOTICS NOS
  5. BACLOFEN. [Concomitant]
     Active Substance: BACLOFEN
  6. CERTIRIZINE [Concomitant]
  7. MULTIVITAMIN [Concomitant]
     Active Substance: VITAMINS
  8. MONTELUKAST [Concomitant]
     Active Substance: MONTELUKAST SODIUM
  9. FISH OIL [Concomitant]
     Active Substance: FISH OIL
  10. LATUDA [Concomitant]
     Active Substance: LURASIDONE HYDROCHLORIDE
  11. ADDERALL [Concomitant]
     Active Substance: AMPHETAMINE ASPARTATE\AMPHETAMINE SULFATE\DEXTROAMPHETAMINE SACCHARATE\DEXTROAMPHETAMINE SULFATE

REACTIONS (2)
  - Sexual dysfunction [None]
  - Therapy change [None]

NARRATIVE: CASE EVENT DATE: 20200708
